FAERS Safety Report 6670742-6 (Version None)
Quarter: 2010Q2

REPORT INFORMATION
  Report Type: 
  Country: None (occurrence: None)
  Receive Date: 20100407
  Receipt Date: 20100325
  Transmission Date: 20101027
  Serious: Yes (Other)
  Sender: FDA-Public Use
  Company Number: PHHY2009FR56785

PATIENT
  Age: 71 Year
  Sex: Male

DRUGS (6)
  1. TEGRETOL [Suspect]
     Indication: TRIGEMINAL NERVE DISORDER
     Dosage: 200 MG, QD
  2. PYOSTACINE [Concomitant]
     Dosage: 1 DF/DAY
  3. ECONAZOLE NITRATE [Concomitant]
     Dosage: 3 DF/DAY
  4. LASIX [Concomitant]
     Dosage: UNK
  5. DIAMICRON [Concomitant]
     Dosage: UNK
  6. ZESTRIL [Concomitant]
     Dosage: UNK

REACTIONS (4)
  - ERYTHEMA [None]
  - MOUTH ULCERATION [None]
  - PENILE INFECTION [None]
  - STAPHYLOCOCCAL INFECTION [None]
